FAERS Safety Report 4599266-7 (Version None)
Quarter: 2005Q1

REPORT INFORMATION
  Report Type: 
  Country: None (occurrence: None)
  Receive Date: 20050302
  Receipt Date: 20050302
  Transmission Date: 20050727
  Serious: Yes (Hospitalization)
  Sender: FDA-Public Use
  Company Number: None

PATIENT
  Sex: Male
  Weight: 74 kg

DRUGS (1)
  1. MAG CITRATE [Suspect]
     Indication: LAXATIVE SUPPORTIVE CARE
     Dosage: QD ORAL
     Route: 048
     Dates: start: 20050227, end: 20050227

REACTIONS (4)
  - DEHYDRATION [None]
  - DIARRHOEA [None]
  - FEELING ABNORMAL [None]
  - SELF-MEDICATION [None]
